FAERS Safety Report 14954861 (Version 2)
Quarter: 2019Q3

REPORT INFORMATION
  Report Type: Report from Study
  Country: None (occurrence: BR)
  Receive Date: 20180530
  Receipt Date: 20190813
  Transmission Date: 20191004
  Serious: Yes (Other)
  Sender: FDA-Public Use
  Company Number: BR-ABBVIE-18K-020-2370404-00

PATIENT
  Age: 40 Year
  Sex: Female
  Weight: 63 kg

DRUGS (3)
  1. HUMIRA [Suspect]
     Active Substance: ADALIMUMAB
     Route: 058
     Dates: start: 201901, end: 2019
  2. HUMIRA [Suspect]
     Active Substance: ADALIMUMAB
     Indication: RHEUMATOID ARTHRITIS
     Dosage: HAD APPLIED FOR IN 2014 OR 2015.
     Route: 058
     Dates: end: 20181019
  3. HUMIRA [Suspect]
     Active Substance: ADALIMUMAB
     Route: 058
     Dates: start: 20180301, end: 2018

REACTIONS (12)
  - Fall [Recovered/Resolved]
  - Exostosis [Recovering/Resolving]
  - Skin laceration [Recovering/Resolving]
  - Post-traumatic pain [Recovering/Resolving]
  - Pruritus [Recovering/Resolving]
  - Traumatic haemorrhage [Recovered/Resolved]
  - Rheumatic disorder [Recovering/Resolving]
  - Fall [Not Recovered/Not Resolved]
  - Muscular weakness [Recovering/Resolving]
  - Malaise [Not Recovered/Not Resolved]
  - Arthralgia [Recovering/Resolving]
  - Hypoaesthesia [Not Recovered/Not Resolved]

NARRATIVE: CASE EVENT DATE: 201708
